APPROVED DRUG PRODUCT: IOPIDINE
Active Ingredient: APRACLONIDINE HYDROCHLORIDE
Strength: EQ 0.5% BASE
Dosage Form/Route: SOLUTION/DROPS;OPHTHALMIC
Application: N020258 | Product #001 | TE Code: AT
Applicant: HARROW EYE LLC
Approved: Jul 30, 1993 | RLD: Yes | RS: Yes | Type: RX